FAERS Safety Report 22277110 (Version 2)
Quarter: 2023Q2

REPORT INFORMATION
  Report Type: Spontaneous
  Country: HU (occurrence: HU)
  Receive Date: 20230503
  Receipt Date: 20230510
  Transmission Date: 20230721
  Serious: No
  Sender: FDA-Public Use
  Company Number: HU-SA-SAC20230417000724

PATIENT
  Age: 82 Year
  Sex: Female

DRUGS (1)
  1. ZOLPIDEM TARTRATE [Suspect]
     Active Substance: ZOLPIDEM TARTRATE
     Indication: Insomnia
     Dosage: 2-3 TABLETS PER DAY
     Route: 065
     Dates: start: 2021

REACTIONS (2)
  - Incorrect product administration duration [Unknown]
  - Intentional product misuse [Unknown]
